FAERS Safety Report 6212716-5 (Version None)
Quarter: 2009Q2

REPORT INFORMATION
  Report Type: 
  Country: None (occurrence: None)
  Receive Date: 20090601
  Receipt Date: 20090601
  Transmission Date: 20091009
  Serious: Yes (Other)
  Sender: FDA-Public Use
  Company Number: None

PATIENT
  Age: 65 Year
  Sex: Female
  Weight: 75.7507 kg

DRUGS (1)
  1. FLUOXETINE HCL [Suspect]
     Indication: DEPRESSION
     Dosage: 20 MGM 2 TAB-BID PO (PROZAC)
     Route: 048
     Dates: start: 20060807

REACTIONS (4)
  - DEPRESSION [None]
  - FATIGUE [None]
  - HYPERPHAGIA [None]
  - PRODUCT SUBSTITUTION ISSUE [None]
